FAERS Safety Report 9618167 (Version 8)
Quarter: 2014Q2

REPORT INFORMATION
  Report Type: Spontaneous
  Country: JP (occurrence: JP)
  Receive Date: 20131014
  Receipt Date: 20140626
  Transmission Date: 20141212
  Serious: Yes (Other)
  Sender: FDA-Public Use
  Company Number: JP-ROCHE-1285607

PATIENT
  Age: 42 Year
  Sex: Male
  Weight: 68 kg

DRUGS (16)
  1. MIRCERA [Suspect]
     Indication: NEPHROGENIC ANAEMIA
     Route: 042
     Dates: start: 20120625
  2. MIRCERA [Suspect]
     Indication: NEPHROGENIC ANAEMIA
     Route: 042
     Dates: start: 20120806
  3. MIRCERA [Suspect]
     Indication: NEPHROGENIC ANAEMIA
     Route: 042
     Dates: start: 20130812, end: 20130826
  4. EPOGIN S [Concomitant]
     Indication: NEPHROGENIC ANAEMIA
     Route: 065
     Dates: start: 20130125, end: 20130805
  5. EPOGIN S [Concomitant]
     Route: 065
     Dates: start: 20130911
  6. OMEPRAL [Concomitant]
     Route: 048
     Dates: end: 201309
  7. CALTAN [Concomitant]
     Route: 048
     Dates: start: 20121207
  8. PHOSBLOCK [Concomitant]
     Route: 048
  9. FEBURIC [Concomitant]
     Route: 048
  10. NESP [Concomitant]
     Indication: NEPHROGENIC ANAEMIA
     Route: 065
     Dates: end: 201206
  11. NESP [Concomitant]
     Indication: NEPHROGENIC ANAEMIA
     Route: 065
     Dates: start: 20121114, end: 20121203
  12. NESP [Concomitant]
     Indication: NEPHROGENIC ANAEMIA
     Route: 065
     Dates: start: 20121217, end: 20130121
  13. NESP [Concomitant]
     Indication: NEPHROGENIC ANAEMIA
     Route: 042
     Dates: start: 20130930
  14. FESIN (JAPAN) [Concomitant]
     Route: 065
     Dates: start: 20130520, end: 20130722
  15. LANSOPRAZOLE [Concomitant]
     Route: 048
  16. CINACALCET HYDROCHLORIDE [Concomitant]
     Indication: HYPERPARATHYROIDISM
     Dosage: DRUG REPORTED AS : REGPARA
     Route: 048

REACTIONS (4)
  - Aplasia pure red cell [Recovered/Resolved]
  - Haemoglobin decreased [Unknown]
  - Gastric polyps [Unknown]
  - Hiatus hernia [Unknown]
